FAERS Safety Report 7991088-X (Version None)
Quarter: 2011Q4

REPORT INFORMATION
  Report Type: 
  Country: None (occurrence: None)
  Receive Date: 20111219
  Receipt Date: 20111005
  Transmission Date: 20120403
  Serious: Yes (Other)
  Sender: FDA-Public Use
  Company Number: US-ROCHE-GNE324040

PATIENT
  Sex: Female
  Weight: 129.84 kg

DRUGS (4)
  1. MEDROL [Suspect]
     Indication: PRODUCT USED FOR UNKNOWN INDICATION
  2. SYMBICORT [Suspect]
     Indication: PRODUCT USED FOR UNKNOWN INDICATION
     Dosage: DOSE REPORTED AS 160/4.5
  3. SINGULAIR [Suspect]
     Indication: PRODUCT USED FOR UNKNOWN INDICATION
  4. XOLAIR [Suspect]
     Indication: ASTHMA
     Route: 058
     Dates: start: 20110714

REACTIONS (3)
  - DIABETES MELLITUS [None]
  - STILLBIRTH [None]
  - GESTATIONAL DIABETES [None]
